FAERS Safety Report 4999748-X (Version None)
Quarter: 2006Q2

REPORT INFORMATION
  Report Type: 
  Country: None (occurrence: None)
  Receive Date: 20060511
  Receipt Date: 20060503
  Transmission Date: 20061013
  Serious: Yes (Hospitalization)
  Sender: FDA-Public Use
  Company Number: FR-GLAXOSMITHKLINE-B0422305A

PATIENT
  Age: 54 Year
  Sex: Female

DRUGS (13)
  1. FORTUM [Suspect]
     Dosage: 3G PER DAY
     Route: 042
     Dates: start: 20060220, end: 20060313
  2. VANCOMYCIN [Suspect]
     Dosage: 3.5G PER DAY
     Route: 042
     Dates: start: 20060210, end: 20060313
  3. CIFLOX [Suspect]
     Dosage: 800MG PER DAY
     Route: 042
     Dates: start: 20060220, end: 20060313
  4. INIPOMP [Suspect]
     Dosage: 40MG PER DAY
     Route: 048
     Dates: start: 20060305, end: 20060317
  5. ZOVIRAX [Concomitant]
     Dates: start: 20060222, end: 20060313
  6. LARGACTIL [Concomitant]
     Route: 048
     Dates: start: 20060211, end: 20060313
  7. VFEND [Concomitant]
     Dates: start: 20060222, end: 20060313
  8. TRANXENE [Concomitant]
     Dates: start: 20060219, end: 20060310
  9. PLITICAN [Concomitant]
     Dates: start: 20060107, end: 20060313
  10. ATARAX [Concomitant]
     Dates: start: 20060207, end: 20060313
  11. TIORFAN [Concomitant]
     Dates: start: 20060224, end: 20060316
  12. MYCOSTATIN [Concomitant]
     Dates: start: 20060219, end: 20060316
  13. PRIMPERAN TAB [Concomitant]
     Dates: start: 20060304

REACTIONS (9)
  - ANAL ABSCESS [None]
  - BACTERIA STOOL IDENTIFIED [None]
  - DERMATITIS EXFOLIATIVE [None]
  - DRUG RASH WITH EOSINOPHILIA AND SYSTEMIC SYMPTOMS [None]
  - EOSINOPHILIA [None]
  - SKIN EXFOLIATION [None]
  - SKIN OEDEMA [None]
  - TRANSAMINASES INCREASED [None]
  - VOMITING [None]
